FAERS Safety Report 4642208-6 (Version None)
Quarter: 2005Q2

REPORT INFORMATION
  Report Type: 
  Country: None (occurrence: None)
  Receive Date: 20050420
  Receipt Date: 20050331
  Transmission Date: 20051028
  Serious: Yes (Hospitalization)
  Sender: FDA-Public Use
  Company Number: USA050392965

PATIENT
  Age: 72 Year
  Sex: Female
  Weight: 85 kg

DRUGS (14)
  1. FORTEO [Suspect]
     Indication: OSTEOPOROSIS
     Dosage: 20 UG/1 DAY
     Dates: start: 20031201
  2. CALCIUM CARBONATE [Concomitant]
  3. SYNTHROID [Concomitant]
  4. ALTACE (RAMIPRIL DURA) [Concomitant]
  5. AVANDIA [Concomitant]
  6. CALCIUM CARBONATE + VITAMIN D [Concomitant]
  7. MULTI-VITAMIN [Concomitant]
  8. VITAMIN C [Concomitant]
  9. HYDROCHLOROTHIAZIDE [Concomitant]
  10. NEXIUM [Concomitant]
  11. DHEA [Concomitant]
  12. TOPAMAX [Concomitant]
  13. NORTRIPTYLINE HCL [Concomitant]
  14. LIDODERM (LIDOCAINE JELLY) [Concomitant]

REACTIONS (7)
  - ANKLE FRACTURE [None]
  - FALL [None]
  - FOOT FRACTURE [None]
  - JOINT SPRAIN [None]
  - PHARMACEUTICAL PRODUCT COMPLAINT [None]
  - RIB FRACTURE [None]
  - UPPER LIMB FRACTURE [None]
